FAERS Safety Report 5422087-X (Version None)
Quarter: 2007Q3

REPORT INFORMATION
  Report Type: 
  Country: None (occurrence: None)
  Receive Date: 20070821
  Receipt Date: 20070821
  Transmission Date: 20080115
  Serious: Yes (Hospitalization)
  Sender: FDA-Public Use
  Company Number: None

PATIENT
  Age: 55 Year
  Sex: Female

DRUGS (9)
  1. ARIPIPRAZOLE [Suspect]
     Indication: SCHIZOPHRENIA
     Dosage: 20MG DAILY PO
     Route: 048
  2. RISPERIDONE [Suspect]
     Indication: SCHIZOPHRENIA
     Dosage: 2 MG BID PO
     Route: 048
  3. COGENTIN [Concomitant]
  4. METFORMIN HCL [Concomitant]
  5. PROTONIX [Concomitant]
  6. LEXAPRO [Concomitant]
  7. TRAMADOL HCL [Concomitant]
  8. SIMVASTATIN [Concomitant]
  9. ROSIGLITAZONE [Concomitant]

REACTIONS (2)
  - HALLUCINATION, AUDITORY [None]
  - TREMOR [None]
